FAERS Safety Report 20091131 (Version 1)
Quarter: 2021Q4

REPORT INFORMATION
  Report Type: Spontaneous
  Country: US (occurrence: US)
  Receive Date: 20211119
  Receipt Date: 20211119
  Transmission Date: 20220303
  Serious: Yes (Other)
  Sender: FDA-Public Use
  Company Number: US-PFIZER INC-202101577608

PATIENT
  Age: 26 Year
  Sex: Female

DRUGS (1)
  1. VIAGRA [Suspect]
     Active Substance: SILDENAFIL CITRATE
     Indication: Erectile dysfunction
     Dosage: UNK

REACTIONS (5)
  - Haemorrhage [Unknown]
  - Erection increased [Unknown]
  - Feeling abnormal [Unknown]
  - Gait disturbance [Unknown]
  - Pain [Unknown]
